FAERS Safety Report 18594776 (Version 6)
Quarter: 2021Q2

REPORT INFORMATION
  Report Type: Report from Study
  Country: GB (occurrence: GB)
  Receive Date: 20201209
  Receipt Date: 20210602
  Transmission Date: 20210717
  Serious: Yes (Hospitalization, Other)
  Sender: FDA-Public Use
  Company Number: GB-SAMSUNG BIOEPIS-SB-2020-32994

PATIENT
  Age: 77 Year
  Sex: Male

DRUGS (1)
  1. IMRALDI [Suspect]
     Active Substance: ADALIMUMAB
     Indication: RHEUMATOID ARTHRITIS
     Route: 058

REACTIONS (13)
  - Rheumatoid arthritis [Unknown]
  - Localised infection [Unknown]
  - Abdominal discomfort [Unknown]
  - Device issue [Unknown]
  - Diarrhoea [Unknown]
  - Pain in extremity [Unknown]
  - Dyspnoea exertional [Unknown]
  - Emotional disorder [Unknown]
  - Sleep disorder [Unknown]
  - Therapeutic product effect incomplete [Unknown]
  - Deep vein thrombosis [Unknown]
  - Suspected COVID-19 [Unknown]
  - Dizziness [Unknown]
